FAERS Safety Report 4552901-1 (Version None)
Quarter: 2005Q1

REPORT INFORMATION
  Report Type: 
  Country: None (occurrence: None)
  Receive Date: 20050114
  Receipt Date: 20050105
  Transmission Date: 20050727
  Serious: Yes (Death, Hospitalization)
  Sender: FDA-Public Use
  Company Number: JP-JNJFOC-20050100611

PATIENT
  Age: 90 Year
  Sex: Female

DRUGS (12)
  1. OFLOCET [Suspect]
     Indication: DRUG USE FOR UNKNOWN INDICATION
     Route: 042
  2. PREVISCAN [Interacting]
     Indication: DRUG USE FOR UNKNOWN INDICATION
     Route: 049
  3. PERFALGAN [Interacting]
     Indication: DRUG USE FOR UNKNOWN INDICATION
     Route: 042
  4. MOPRAL [Suspect]
     Indication: DRUG USE FOR UNKNOWN INDICATION
     Route: 049
  5. SOLU-MEDROL [Suspect]
     Indication: DRUG USE FOR UNKNOWN INDICATION
     Route: 042
  6. EFFEXOR [Suspect]
     Indication: DRUG USE FOR UNKNOWN INDICATION
     Route: 049
     Dates: end: 20041031
  7. LORAZEPAM [Concomitant]
     Route: 049
  8. ASPEGIC 325 [Concomitant]
     Route: 049
  9. TIAPRIDAL [Concomitant]
     Route: 049
  10. NITRODERM [Concomitant]
  11. AUGMENTIN '125' [Concomitant]
  12. AUGMENTIN '125' [Concomitant]

REACTIONS (15)
  - BLOOD ALBUMIN DECREASED [None]
  - DEEP VEIN THROMBOSIS [None]
  - DEHYDRATION [None]
  - DRUG INTERACTION [None]
  - FEMUR FRACTURE [None]
  - GASTROINTESTINAL HAEMORRHAGE [None]
  - HAEMATEMESIS [None]
  - HYPOTENSION [None]
  - INFECTION [None]
  - INTERNATIONAL NORMALISED RATIO INCREASED [None]
  - MALNUTRITION [None]
  - PROTHROMBIN TIME RATIO DECREASED [None]
  - PULMONARY EMBOLISM [None]
  - PULMONARY OEDEMA [None]
  - SUPERINFECTION LUNG [None]
